FAERS Safety Report 8110411-9 (Version None)
Quarter: 2012Q1

REPORT INFORMATION
  Report Type: 
  Country: None (occurrence: None)
  Receive Date: 20120202
  Receipt Date: 20120123
  Transmission Date: 20120608
  Serious: Yes (Other)
  Sender: FDA-Public Use
  Company Number: BR-MERCK-1201BRA00070

PATIENT
  Sex: Male
  Weight: 22 kg

DRUGS (5)
  1. SINGULAIR [Suspect]
     Indication: ASTHMA
     Route: 048
     Dates: start: 20060801
  2. FLUTICASONE FUROATE [Concomitant]
     Indication: RHINITIS ALLERGIC
     Route: 065
     Dates: start: 20100101
  3. SINGULAIR [Suspect]
     Route: 048
     Dates: start: 20110101
  4. SINGULAIR [Suspect]
     Route: 048
     Dates: end: 20110101
  5. BENZALKONIUM CHLORIDE AND SODIUM CHLORIDE [Concomitant]
     Route: 065

REACTIONS (18)
  - INGUINAL HERNIA [None]
  - PHIMOSIS [None]
  - CONSTIPATION [None]
  - BLOOD TESTOSTERONE DECREASED [None]
  - DIZZINESS [None]
  - IRRITABILITY [None]
  - EPISTAXIS [None]
  - EMOTIONAL DISORDER OF CHILDHOOD [None]
  - ABDOMINAL PAIN [None]
  - SCROTAL DISORDER [None]
  - OVERDOSE [None]
  - WEIGHT DECREASED [None]
  - VOMITING [None]
  - INSOMNIA [None]
  - NAUSEA [None]
  - NASAL CONGESTION [None]
  - FEEDING DISORDER OF INFANCY OR EARLY CHILDHOOD [None]
  - CHILLS [None]
